APPROVED DRUG PRODUCT: SYMPAZAN
Active Ingredient: CLOBAZAM
Strength: 5MG
Dosage Form/Route: FILM;ORAL
Application: N210833 | Product #001
Applicant: ASSERTIO SPECIALTY PHARMACEUTICALS LLC
Approved: Nov 1, 2018 | RLD: Yes | RS: No | Type: RX

PATENTS:
Patent 12403090 | Expires: Sep 5, 2039
Patent 12290597 | Expires: Sep 5, 2039
Patent 11541002 | Expires: Jan 31, 2040